FAERS Safety Report 5605968-3 (Version None)
Quarter: 2008Q1

REPORT INFORMATION
  Report Type: 
  Country: None (occurrence: None)
  Receive Date: 20080129
  Receipt Date: 20071019
  Transmission Date: 20080703
  Serious: No
  Sender: FDA-Public Use
  Company Number: US-AMGEN-KDL250705

PATIENT
  Age: 56 Year
  Sex: Female

DRUGS (2)
  1. KEPIVANCE [Suspect]
     Indication: BONE MARROW TRANSPLANT
     Dates: start: 20070401, end: 20070401
  2. MELPHALAN [Concomitant]

REACTIONS (1)
  - SALIVARY HYPERSECRETION [None]
